FAERS Safety Report 10009575 (Version 2)
Quarter: 2014Q1

REPORT INFORMATION
  Report Type: Spontaneous
  Country: US (occurrence: US)
  Receive Date: 20140312
  Receipt Date: 20140312
  Transmission Date: 20141002
  Serious: No
  Sender: FDA-Public Use
  Company Number: US-INCYTE CORPORATION-2012IN002047

PATIENT
  Sex: Male
  Weight: 73.47 kg

DRUGS (1)
  1. JAKAFI [Suspect]
     Indication: MYELOFIBROSIS
     Dosage: 15 MG, BID
     Route: 048

REACTIONS (4)
  - Dyspnoea exertional [Unknown]
  - Anaemia [Unknown]
  - Dizziness [Unknown]
  - Headache [Unknown]
